FAERS Safety Report 15791162 (Version 6)
Quarter: 2019Q1

REPORT INFORMATION
  Report Type: Report from Study
  Country: DE (occurrence: DE)
  Receive Date: 20190104
  Receipt Date: 20190321
  Transmission Date: 20190417
  Serious: Yes (Hospitalization, Other)
  Sender: FDA-Public Use
  Company Number: DE-MYLANLABS-2018M1097888

PATIENT
  Age: 72 Year
  Sex: Male

DRUGS (5)
  1. DIPIPERON [Suspect]
     Active Substance: PIPAMPERONE
     Dosage: 60 MILLIGRAM, QD, (20 MG AT 10 PM AND ANOTHER 40 MG AT MIDNIGHT)
     Route: 048
     Dates: start: 20171121, end: 20171121
  2. DOMINAL (PROTHIPENDYL HYDROCHLORIDE) [Suspect]
     Active Substance: PROTHIPENDYL HYDROCHLORIDE
     Indication: PRODUCT USED FOR UNKNOWN INDICATION
     Dosage: 80 MILLIGRAM, QD
     Route: 048
     Dates: start: 20171121, end: 20171121
  3. AMITRIPTYLINE [Suspect]
     Active Substance: AMITRIPTYLINE
     Indication: SLEEP DISORDER
     Dosage: 50 MILLIGRAM (50 MG, UNK SINCE 4 MONTHS)
     Route: 048
     Dates: end: 20171120
  4. AMITRIPTYLINE [Suspect]
     Active Substance: AMITRIPTYLINE
     Dosage: 50 MILLIGRAM, QD
     Route: 048
     Dates: start: 20171121
  5. DIPIPERON [Suspect]
     Active Substance: PIPAMPERONE
     Indication: PRODUCT USED FOR UNKNOWN INDICATION
     Dosage: 40 MILLIGRAM, UNK
     Route: 065
     Dates: start: 20171121, end: 20171121

REACTIONS (3)
  - Traumatic fracture [Recovered/Resolved]
  - Fall [Recovered/Resolved]
  - Facial bones fracture [Recovered/Resolved]

NARRATIVE: CASE EVENT DATE: 20171122
